FAERS Safety Report 5683848-5 (Version None)
Quarter: 2008Q1

REPORT INFORMATION
  Report Type: 
  Country: None (occurrence: None)
  Receive Date: 20080328
  Receipt Date: 20080320
  Transmission Date: 20080703
  Serious: Yes (Hospitalization)
  Sender: FDA-Public Use
  Company Number: CA-JNJFOC-20080304502

PATIENT
  Sex: Female

DRUGS (4)
  1. RISPERDAL [Suspect]
     Indication: SUICIDE ATTEMPT
     Route: 048
  2. SEROQUEL [Concomitant]
  3. WELLBUTRIN [Concomitant]
  4. CITALOPRAM [Concomitant]

REACTIONS (5)
  - BLOOD PRESSURE INCREASED [None]
  - HEART RATE DECREASED [None]
  - HEART RATE INCREASED [None]
  - INTENTIONAL OVERDOSE [None]
  - SUICIDE ATTEMPT [None]
